FAERS Safety Report 9701185 (Version 1)
Quarter: 2013Q4

REPORT INFORMATION
  Report Type: Spontaneous
  Country: NL (occurrence: NL)
  Receive Date: 20131121
  Receipt Date: 20131121
  Transmission Date: 20140711
  Serious: Yes (Life-Threatening, Hospitalization)
  Sender: FDA-Public Use
  Company Number: NL-PFIZER INC-2013329108

PATIENT
  Age: 67 Year
  Sex: Female

DRUGS (8)
  1. DOXYCYCLINE HYCLATE [Suspect]
     Indication: SINUSITIS
     Dosage: 100 MG, 1X/DAY
     Dates: start: 20131001
  2. EZETIMIBE/SIMVASTATIN [Interacting]
     Indication: HYPERCHOLESTEROLAEMIA
     Dosage: 1 DF, 1X/DAY
     Dates: start: 2010
  3. METFORMIN [Concomitant]
     Dosage: 500 MG, 2X/DAY
  4. PSYLLIUM [Concomitant]
     Dosage: 1 DF, 1X/DAY
  5. VENTOLIN [Concomitant]
  6. SPIRIVA [Concomitant]
     Dosage: 1 DF, 1X/DAY
  7. SERETIDE [Concomitant]
     Dosage: 1 DF, 2X/DAY
  8. EUTHYROX [Concomitant]
     Dosage: 75 UG, 1X/DAY

REACTIONS (2)
  - Drug interaction [Recovering/Resolving]
  - Pancreatitis [Recovering/Resolving]
